FAERS Safety Report 17371981 (Version 1)
Quarter: 2020Q1

REPORT INFORMATION
  Report Type: Report from Study
  Country: US (occurrence: US)
  Receive Date: 20200205
  Receipt Date: 20200205
  Transmission Date: 20200409
  Serious: Yes (Death)
  Sender: FDA-Public Use
  Company Number: US-BAUSCH-BL-2019-002236

PATIENT
  Age: 62 Year
  Sex: Female

DRUGS (2)
  1. XIFAXAN [Suspect]
     Active Substance: RIFAXIMIN
     Route: 048
     Dates: start: 201810
  2. XIFAXAN [Suspect]
     Active Substance: RIFAXIMIN
     Indication: LIVER DISORDER
     Route: 048

REACTIONS (4)
  - Therapy cessation [Unknown]
  - Death [Fatal]
  - Inability to afford medication [Unknown]
  - Product supply issue [Unknown]

NARRATIVE: CASE EVENT DATE: 20200118
